FAERS Safety Report 4759211-8 (Version None)
Quarter: 2005Q3

REPORT INFORMATION
  Report Type: 
  Country: None (occurrence: None)
  Receive Date: 20050831
  Receipt Date: 20050822
  Transmission Date: 20060218
  Serious: Yes (Death, Hospitalization)
  Sender: FDA-Public Use
  Company Number: 200512626GDS

PATIENT
  Age: 71 Year
  Sex: Male

DRUGS (4)
  1. ASPIRIN [Suspect]
     Dosage: QD, ORAL
     Route: 048
     Dates: end: 20050609
  2. LASILACTON (SPIRONOLACTONE/FUROSEMIDE) [Suspect]
     Dosage: 20/50 MG, QD, ORAL
     Route: 048
     Dates: end: 20050609
  3. ENALAPRIL MALEATE [Suspect]
     Dosage: 20 MG, TOTAL DAILY, ORAL
     Route: 048
     Dates: end: 20050609
  4. MARCOUMAR [Concomitant]

REACTIONS (11)
  - CARDIAC ARREST [None]
  - CHEST PAIN [None]
  - CONDITION AGGRAVATED [None]
  - DYSPNOEA [None]
  - ELECTROCARDIOGRAM QRS COMPLEX PROLONGED [None]
  - GENERAL PHYSICAL HEALTH DETERIORATION [None]
  - HYPERKALAEMIA [None]
  - HYPOTHERMIA [None]
  - MUSCULAR WEAKNESS [None]
  - QUADRIPLEGIA [None]
  - RENAL FAILURE CHRONIC [None]
